FAERS Safety Report 6333355-1 (Version None)
Quarter: 2009Q3

REPORT INFORMATION
  Report Type: 
  Country: None (occurrence: None)
  Receive Date: 20090828
  Receipt Date: 20090827
  Transmission Date: 20100115
  Serious: Yes (Other)
  Sender: FDA-Public Use
  Company Number: US-GENENTECH-268871

PATIENT
  Sex: Female
  Weight: 65.306 kg

DRUGS (7)
  1. XOLAIR [Suspect]
     Indication: ASTHMA
     Dosage: 150 MG, Q4W
     Route: 058
     Dates: start: 20061027
  2. IMMUNOTHERAPY (CAT, GRASS, TREES, AND WEEDS A [Concomitant]
     Indication: HYPERSENSITIVITY
     Dosage: UNK
     Route: 058
  3. REMICADE [Concomitant]
     Indication: DRUG USE FOR UNKNOWN INDICATION
     Dosage: UNK
     Route: 058
  4. PULMICORT-100 [Concomitant]
     Indication: ASTHMA
     Dosage: UNK
     Dates: start: 20070924
  5. SINGULAIR [Concomitant]
     Indication: ASTHMA
     Dosage: UNK
     Route: 048
     Dates: start: 20070924
  6. TESSALON [Concomitant]
     Indication: ASTHMA
     Dosage: UNK
     Route: 048
     Dates: start: 20071129
  7. ALLEGRA [Concomitant]
     Indication: HYPERSENSITIVITY
     Dosage: UNK
     Route: 048
     Dates: start: 20081002

REACTIONS (1)
  - RASH [None]
